FAERS Safety Report 8061236-4 (Version None)
Quarter: 2012Q1

REPORT INFORMATION
  Report Type: 
  Country: None (occurrence: None)
  Receive Date: 20120120
  Receipt Date: 20110718
  Transmission Date: 20120608
  Serious: No
  Sender: FDA-Public Use
  Company Number: US-ALLERGAN-1109644US

PATIENT
  Age: 83 Year
  Sex: Female

DRUGS (4)
  1. RESTASIS [Suspect]
     Indication: MACULAR DEGENERATION
     Dosage: 1 GTT, BID
     Route: 047
     Dates: start: 20110501, end: 20110717
  2. RESTASIS [Suspect]
     Dosage: UNK
     Dates: start: 20100701
  3. REFRESH TEARS [Concomitant]
     Indication: MACULAR DEGENERATION
     Dosage: UNK
  4. NATURAL TEARS [Concomitant]
     Indication: MACULAR DEGENERATION
     Dosage: UNK

REACTIONS (3)
  - INSTILLATION SITE PAIN [None]
  - VISION BLURRED [None]
  - DRUG INEFFECTIVE [None]
